FAERS Safety Report 24745254 (Version 3)
Quarter: 2025Q1

REPORT INFORMATION
  Report Type: Spontaneous
  Country: GB (occurrence: GB)
  Receive Date: 20241217
  Receipt Date: 20250105
  Transmission Date: 20250409
  Serious: Yes (Hospitalization)
  Sender: ABBVIE
  Company Number: GB-ABBVIE-6045630

PATIENT
  Age: 80 Year
  Sex: Male

DRUGS (2)
  1. FOSCARBIDOPA\FOSLEVODOPA [Suspect]
     Active Substance: FOSCARBIDOPA\FOSLEVODOPA
     Indication: Parkinson^s disease
     Route: 058
  2. CARBIDOPA\LEVODOPA [Concomitant]
     Active Substance: CARBIDOPA\LEVODOPA
     Indication: Product used for unknown indication

REACTIONS (12)
  - Hyponatraemia [Not Recovered/Not Resolved]
  - Device issue [Not Recovered/Not Resolved]
  - Gait inability [Not Recovered/Not Resolved]
  - Balance disorder [Not Recovered/Not Resolved]
  - Stress [Unknown]
  - Dry mouth [Unknown]
  - Clumsiness [Unknown]
  - Parkinson^s disease [Unknown]
  - Musculoskeletal disorder [Not Recovered/Not Resolved]
  - Aggression [Unknown]
  - Memory impairment [Unknown]
  - Dysgraphia [Unknown]

NARRATIVE: CASE EVENT DATE: 20241101
